FAERS Safety Report 7953154-4 (Version None)
Quarter: 2011Q4

REPORT INFORMATION
  Report Type: 
  Country: None (occurrence: None)
  Receive Date: 20111201
  Receipt Date: 20111122
  Transmission Date: 20120403
  Serious: Yes (Life-Threatening, Other)
  Sender: FDA-Public Use
  Company Number: JP-AMGEN-JPNSP2011061231

PATIENT
  Age: 72 Year
  Sex: Female

DRUGS (8)
  1. ENBREL [Suspect]
     Indication: RHEUMATOID ARTHRITIS
     Dosage: 25 MG, 2X/WEEK
     Route: 058
     Dates: start: 20110107, end: 20110117
  2. ENBREL [Suspect]
     Dosage: 50 MG, WEEKLY, LYOPHILIZED
     Route: 058
     Dates: start: 20110121, end: 20110914
  3. FOLIC ACID [Concomitant]
     Dosage: 5 MG, WEEKLY
     Route: 048
     Dates: start: 20080101, end: 20110914
  4. MUCOSTA [Concomitant]
     Dosage: UNK UNK, BID
     Route: 048
     Dates: start: 20080101, end: 20110914
  5. GASTER                             /00661201/ [Concomitant]
     Dosage: UNK UNK, BID
     Route: 048
     Dates: start: 20080101, end: 20110914
  6. METHOTREXATE [Suspect]
     Indication: RHEUMATOID ARTHRITIS
     Dosage: 8 MG, WEEKLY
     Route: 048
     Dates: start: 20080101, end: 20110914
  7. LOXONIN [Concomitant]
     Dosage: UNK UNK, BID
     Route: 048
     Dates: start: 20080101, end: 20110914
  8. ISONIAZID [Concomitant]
     Dosage: UNK UNK, TID
     Route: 048
     Dates: start: 20101215, end: 20110608

REACTIONS (2)
  - ARTHRALGIA [None]
  - LYMPHOMA [None]
